FAERS Safety Report 26026032 (Version 1)
Quarter: 2025Q4

REPORT INFORMATION
  Report Type: Spontaneous
  Country: US (occurrence: None)
  Receive Date: 20251111
  Receipt Date: 20251111
  Transmission Date: 20260118
  Serious: Yes (Hospitalization)
  Sender: FDA-CTU
  Company Number: None

PATIENT
  Age: 70 Year
  Sex: Male
  Weight: 82.5 kg

DRUGS (4)
  1. FLUOROURACIL [Suspect]
     Active Substance: FLUOROURACIL
     Dates: end: 20251022
  2. CAMPTOSAR [Suspect]
     Active Substance: IRINOTECAN HYDROCHLORIDE
     Dates: end: 20251022
  3. LEUCOVORIN CALCIUM [Suspect]
     Active Substance: LEUCOVORIN CALCIUM
     Dates: end: 20251022
  4. ELOXATIN [Suspect]
     Active Substance: OXALIPLATIN
     Dates: end: 20251022

REACTIONS (9)
  - Haematuria [None]
  - Blood urine present [None]
  - Pollakiuria [None]
  - Urinary straining [None]
  - Nephrolithiasis [None]
  - Cystitis haemorrhagic [None]
  - Bladder cancer [None]
  - Bladder spasm [None]
  - Therapy cessation [None]

NARRATIVE: CASE EVENT DATE: 20251022
